FAERS Safety Report 10903485 (Version 1)
Quarter: 2015Q1

REPORT INFORMATION
  Report Type: Spontaneous
  Country: GB (occurrence: None)
  Receive Date: 20150304
  Receipt Date: 20150304
  Transmission Date: 20150721
  Serious: Yes (Disabling)
  Sender: FDA-Public Use
  Company Number: GB2015K0644SPO

PATIENT
  Age: 58 Year
  Sex: Female
  Weight: 79 kg

DRUGS (1)
  1. LANSOPRAZOLE GENERIC (LANSOPRAZOLE) UNKNOWN [Suspect]
     Active Substance: LANSOPRAZOLE

REACTIONS (4)
  - Dysgeusia [None]
  - Glossodynia [None]
  - Gingival pain [None]
  - Oral discomfort [None]

NARRATIVE: CASE EVENT DATE: 20130101
